FAERS Safety Report 14275147 (Version 2)
Quarter: 2018Q1

REPORT INFORMATION
  Report Type: Spontaneous
  Country: US (occurrence: US)
  Receive Date: 20171212
  Receipt Date: 20180118
  Transmission Date: 20180508
  Serious: No
  Sender: FDA-Public Use
  Company Number: US-GLAXOSMITHKLINE-US2017187330

PATIENT
  Sex: Female

DRUGS (7)
  1. FLOVENT [Suspect]
     Active Substance: FLUTICASONE PROPIONATE
     Indication: ASTHMA
     Dosage: 110 ?G, 1D
     Route: 055
     Dates: start: 2012
  2. SUMATRIPTAN SUCCINATE. [Concomitant]
     Active Substance: SUMATRIPTAN SUCCINATE
  3. BUPIVACAINE. [Concomitant]
     Active Substance: BUPIVACAINE
  4. FLOVENT [Suspect]
     Active Substance: FLUTICASONE PROPIONATE
     Indication: MULTIPLE ALLERGIES
  5. ALBUTEROL SULFATE. [Concomitant]
     Active Substance: ALBUTEROL SULFATE
  6. MAXALT [Concomitant]
     Active Substance: RIZATRIPTAN BENZOATE
  7. DILAUDID [Concomitant]
     Active Substance: HYDROMORPHONE HYDROCHLORIDE

REACTIONS (8)
  - Product quality issue [Unknown]
  - Inhalation therapy [Unknown]
  - Wheezing [Unknown]
  - Drug ineffective [Unknown]
  - Asthma [Unknown]
  - Underdose [Unknown]
  - Product use in unapproved indication [Unknown]
  - Inappropriate schedule of drug administration [Unknown]

NARRATIVE: CASE EVENT DATE: 2012
